FAERS Safety Report 17847364 (Version 4)
Quarter: 2020Q3

REPORT INFORMATION
  Report Type: Other
  Country: DE (occurrence: DE)
  Receive Date: 20200601
  Receipt Date: 20200915
  Transmission Date: 20201103
  Serious: Yes (Hospitalization, Other)
  Sender: FDA-Public Use
  Company Number: DE-ROCHE-2577243

PATIENT
  Age: 53 Year
  Sex: Female
  Weight: 141 kg

DRUGS (4)
  1. GABAPENTIN. [Concomitant]
     Active Substance: GABAPENTIN
     Dosage: 900MG ? 1500MG
  2. DICLOFENAC [Concomitant]
     Active Substance: DICLOFENAC
  3. TIZANIDINE. [Concomitant]
     Active Substance: TIZANIDINE
  4. OCREVUS [Suspect]
     Active Substance: OCRELIZUMAB
     Indication: SECONDARY PROGRESSIVE MULTIPLE SCLEROSIS
     Route: 042
     Dates: start: 20190723, end: 20200608

REACTIONS (9)
  - Off label use [Unknown]
  - Herpes zoster [Recovered/Resolved]
  - Breast cancer metastatic [Not Recovered/Not Resolved]
  - Polyneuropathy [Not Recovered/Not Resolved]
  - Product use in unapproved indication [Unknown]
  - Weight increased [Recovering/Resolving]
  - Gait disturbance [Not Recovered/Not Resolved]
  - Balance disorder [Not Recovered/Not Resolved]
  - Drug ineffective [Unknown]

NARRATIVE: CASE EVENT DATE: 20190723
